FAERS Safety Report 8547644-3 (Version None)
Quarter: 2012Q3

REPORT INFORMATION
  Report Type: 
  Country: None (occurrence: None)
  Receive Date: 20120727
  Receipt Date: 20111021
  Transmission Date: 20120928
  Serious: Yes (Other)
  Sender: FDA-Public Use
  Company Number: US-ASTRAZENECA-2011SE63999

PATIENT
  Age: 30 Year
  Sex: Male

DRUGS (5)
  1. SEROQUEL XR [Suspect]
     Route: 048
  2. CELEXA [Concomitant]
  3. LORAZEPAM [Concomitant]
  4. PRAZOSIN [Concomitant]
  5. VIIBRYD [Concomitant]

REACTIONS (2)
  - PARKINSONISM [None]
  - DYSTONIA [None]
